FAERS Safety Report 5069858-X (Version None)
Quarter: 2006Q3

REPORT INFORMATION
  Report Type: 
  Country: None (occurrence: None)
  Receive Date: 20060726
  Receipt Date: 20060721
  Transmission Date: 20061208
  Serious: Yes (Hospitalization)
  Sender: FDA-Public Use
  Company Number: 200610382

PATIENT
  Age: 44 Year
  Sex: Female
  Weight: 63 kg

DRUGS (1)
  1. SANGLOPOR (IMMUNOGLOBULIN HUMAN NORMAL ) (ZLB BEHRING) [Suspect]
     Indication: IDIOPATHIC THROMBOCYTOPENIC PURPURA
     Dosage: 10 G DAILY IV
     Route: 042
     Dates: start: 20060626, end: 20060628

REACTIONS (1)
  - ARTHRALGIA [None]
